FAERS Safety Report 8354033-3 (Version None)
Quarter: 2012Q2

REPORT INFORMATION
  Report Type: 
  Country: None (occurrence: None)
  Receive Date: 20120511
  Receipt Date: 20101228
  Transmission Date: 20120825
  Serious: No
  Sender: FDA-Public Use
  Company Number: US-TEVA-2010006631

PATIENT
  Sex: Male
  Weight: 95.34 kg

DRUGS (3)
  1. NUVIGIL [Suspect]
     Dosage: 150MG OR 250MG
     Route: 048
     Dates: start: 20101223, end: 20101224
  2. NUVIGIL [Suspect]
     Dosage: 75 MILLIGRAM;
     Route: 048
     Dates: start: 20101225, end: 20101225
  3. NUVIGIL [Suspect]
     Indication: SLEEP APNOEA SYNDROME
     Dosage: 150MG OR 250MG
     Route: 048
     Dates: start: 20101104

REACTIONS (4)
  - RASH [None]
  - INSOMNIA [None]
  - PRURITUS [None]
  - SKIN BURNING SENSATION [None]
